FAERS Safety Report 10336905 (Version 1)
Quarter: 2014Q3

REPORT INFORMATION
  Report Type: Spontaneous
  Country: US (occurrence: US)
  Receive Date: 20140723
  Receipt Date: 20140723
  Transmission Date: 20150326
  Serious: No
  Sender: FDA-Public Use
  Company Number: US-MYLANLABS-2014S1012199

PATIENT
  Sex: Male

DRUGS (1)
  1. DRONABINOL CAPSULES USP [Suspect]
     Active Substance: DRONABINOL
     Indication: APPETITE DISORDER
     Route: 048
     Dates: start: 20140521

REACTIONS (3)
  - Drug ineffective [Not Recovered/Not Resolved]
  - Asthenia [Not Recovered/Not Resolved]
  - Incorrect product storage [Recovered/Resolved]

NARRATIVE: CASE EVENT DATE: 20140521
